FAERS Safety Report 8572257-7 (Version None)
Quarter: 2012Q3

REPORT INFORMATION
  Report Type: 
  Country: None (occurrence: None)
  Receive Date: 20120806
  Receipt Date: 20120731
  Transmission Date: 20120928
  Serious: Yes (Death, Hospitalization)
  Sender: FDA-Public Use
  Company Number: US-AMGEN-USASP2012034298

PATIENT
  Age: 90 Year
  Sex: Female
  Weight: 78.458 kg

DRUGS (2)
  1. PROCRIT [Suspect]
     Indication: PRODUCT USED FOR UNKNOWN INDICATION
     Dosage: 60000 UNIT, Q2WK
     Route: 058
     Dates: start: 20120424, end: 20120508
  2. ARANESP [Suspect]
     Indication: MYELODYSPLASTIC SYNDROME

REACTIONS (2)
  - HYPERSENSITIVITY [None]
  - ANGIOEDEMA [None]
